FAERS Safety Report 8184441-5 (Version None)
Quarter: 2012Q1

REPORT INFORMATION
  Report Type: 
  Country: None (occurrence: None)
  Receive Date: 20120305
  Receipt Date: 20120228
  Transmission Date: 20120608
  Serious: Yes (Hospitalization, Disabling, Other)
  Sender: FDA-Public Use
  Company Number: BR-ABBOTT-12P-020-0903563-00

PATIENT
  Sex: Female
  Weight: 70 kg

DRUGS (3)
  1. HUMIRA [Suspect]
     Indication: RHEUMATOID ARTHRITIS
     Dates: start: 20110405, end: 20120101
  2. CORTISONE ACETATE [Suspect]
     Indication: BRONCHOSPASM
  3. HUMIRA [Suspect]
     Dates: start: 20120224

REACTIONS (7)
  - BONE PAIN [None]
  - BEDRIDDEN [None]
  - SPINAL CORD COMPRESSION [None]
  - JOINT SWELLING [None]
  - LUMBAR SPINAL STENOSIS [None]
  - BRONCHOSPASM [None]
  - ABASIA [None]
